FAERS Safety Report 24523882 (Version 1)
Quarter: 2024Q4

REPORT INFORMATION
  Report Type: Spontaneous
  Country: FR (occurrence: FR)
  Receive Date: 20241018
  Receipt Date: 20241018
  Transmission Date: 20250115
  Serious: Yes (Other)
  Sender: MERCK
  Company Number: None

PATIENT
  Age: 75 Year
  Sex: Male
  Weight: 80 kg

DRUGS (2)
  1. KEYTRUDA [Suspect]
     Active Substance: PEMBROLIZUMAB
     Indication: Clear cell renal cell carcinoma
     Dosage: 200 MILLIGRAM, Q3W
     Route: 042
     Dates: start: 20230919, end: 20240604
  2. LENVIMA [Concomitant]
     Active Substance: LENVATINIB
     Indication: Clear cell renal cell carcinoma
     Dosage: 14 MILLIGRAM, QD
     Route: 048
     Dates: start: 20230925

REACTIONS (1)
  - Ulcerative keratitis [Not Recovered/Not Resolved]

NARRATIVE: CASE EVENT DATE: 20240401
